FAERS Safety Report 6216999-7 (Version None)
Quarter: 2009Q2

REPORT INFORMATION
  Report Type: 
  Country: None (occurrence: None)
  Receive Date: 20090604
  Receipt Date: 20090529
  Transmission Date: 20091009
  Serious: Yes (Death, Life-Threatening)
  Sender: FDA-Public Use
  Company Number: 2009US001970

PATIENT
  Age: 72 Year
  Sex: Female

DRUGS (2)
  1. AMBISOME [Suspect]
     Dosage: UNKNOWN/D, IV NOS
     Route: 042
  2. MICAFUNGIN (MICAFUNGIN) INJECTION [Concomitant]

REACTIONS (2)
  - ASPIRATION BONE MARROW ABNORMAL [None]
  - PANCYTOPENIA [None]
